FAERS Safety Report 7300094-X (Version None)
Quarter: 2011Q1

REPORT INFORMATION
  Report Type: 
  Country: None (occurrence: None)
  Receive Date: 20110217
  Receipt Date: 20110209
  Transmission Date: 20110831
  Serious: Yes (Hospitalization)
  Sender: FDA-Public Use
  Company Number: JP-B.I. PHARMACEUTICALS,INC./RIDGEFIELD-2011-BP-02404NB

PATIENT
  Sex: Female

DRUGS (1)
  1. MOBIC [Suspect]
     Indication: PAIN
     Route: 048

REACTIONS (2)
  - OVERDOSE [None]
  - CEREBRAL ATROPHY [None]
